FAERS Safety Report 14248189 (Version 4)
Quarter: 2018Q1

REPORT INFORMATION
  Report Type: Report from Study
  Country: US (occurrence: US)
  Receive Date: 20171204
  Receipt Date: 20180123
  Transmission Date: 20180508
  Serious: Yes (Hospitalization, Other)
  Sender: FDA-Public Use
  Company Number: US-GILEAD-2017-0303817

PATIENT
  Age: 11 Year
  Sex: Male
  Weight: 82.3 kg

DRUGS (21)
  1. AMBRISENTAN [Suspect]
     Active Substance: AMBRISENTAN
     Indication: RIGHT VENTRICULAR FAILURE
  2. ALBUTEROL                          /00139501/ [Concomitant]
     Active Substance: ALBUTEROL
  3. LANTUS [Concomitant]
     Active Substance: INSULIN GLARGINE
  4. VALCYTE [Concomitant]
     Active Substance: VALGANCICLOVIR HYDROCHLORIDE
  5. FAMOTIDINE. [Concomitant]
     Active Substance: FAMOTIDINE
     Dates: start: 20171123
  6. GABAPENTIN. [Concomitant]
     Active Substance: GABAPENTIN
     Dates: start: 20171123
  7. LATUDA [Concomitant]
     Active Substance: LURASIDONE HYDROCHLORIDE
     Dates: start: 20171123
  8. METFORMIN [Concomitant]
     Active Substance: METFORMIN HYDROCHLORIDE
  9. AMBRISENTAN [Suspect]
     Active Substance: AMBRISENTAN
     Indication: CARDIOMYOPATHY
  10. MAGNESIUM OXIDE. [Concomitant]
     Active Substance: MAGNESIUM OXIDE
  11. CLONIDINE. [Concomitant]
     Active Substance: CLONIDINE
     Dates: start: 20171123
  12. MULTIVITAMIN                       /00097801/ [Concomitant]
     Active Substance: VITAMINS
  13. CONCERTA [Suspect]
     Active Substance: METHYLPHENIDATE HYDROCHLORIDE
     Indication: PRODUCT USED FOR UNKNOWN INDICATION
     Route: 048
     Dates: start: 201712
  14. ASPIRIN                            /00002701/ [Concomitant]
     Active Substance: ASPIRIN
  15. CLINDAMYCIN. [Concomitant]
     Active Substance: CLINDAMYCIN
  16. AMBRISENTAN [Suspect]
     Active Substance: AMBRISENTAN
     Indication: PULMONARY ARTERIAL HYPERTENSION
     Dosage: 10 MG, QD
     Route: 048
     Dates: start: 20171104
  17. AMBRISENTAN [Suspect]
     Active Substance: AMBRISENTAN
     Indication: SLEEP APNOEA SYNDROME
  18. BACTRIM [Concomitant]
     Active Substance: SULFAMETHOXAZOLE\TRIMETHOPRIM
  19. TACROLIMUS. [Concomitant]
     Active Substance: TACROLIMUS
  20. FLUOXETINE [Concomitant]
     Active Substance: FLUOXETINE HYDROCHLORIDE
     Dates: start: 20171123
  21. MYCOPHENOLATE [Concomitant]
     Active Substance: MYCOPHENOLIC ACID

REACTIONS (4)
  - Off label use [Not Recovered/Not Resolved]
  - Restlessness [Unknown]
  - Dyspnoea [Unknown]
  - Syncope [Recovered/Resolved]

NARRATIVE: CASE EVENT DATE: 20171104
